FAERS Safety Report 4757321-2 (Version None)
Quarter: 2005Q3

REPORT INFORMATION
  Report Type: 
  Country: None (occurrence: None)
  Receive Date: 20050831
  Receipt Date: 20050824
  Transmission Date: 20060218
  Serious: Yes (Life-Threatening, Hospitalization)
  Sender: FDA-Public Use
  Company Number: PHEH2005US09476

PATIENT
  Age: 55 Year
  Sex: Female

DRUGS (2)
  1. LOTREL [Suspect]
     Indication: HYPERTENSION
     Dosage: 10/20MG, QD
     Route: 048
     Dates: start: 20050323, end: 20050412
  2. GLUCOPHAGE [Concomitant]
     Indication: DIABETES MELLITUS

REACTIONS (8)
  - CATHETERISATION CARDIAC [None]
  - CHEST PAIN [None]
  - DIAGNOSTIC PROCEDURE [None]
  - DIARRHOEA [None]
  - DYSPNOEA [None]
  - OROPHARYNGEAL SWELLING [None]
  - STOMACH DISCOMFORT [None]
  - URTICARIA [None]
